FAERS Safety Report 23660064 (Version 2)
Quarter: 2024Q2

REPORT INFORMATION
  Report Type: Report from Study
  Country: CN (occurrence: CN)
  Receive Date: 20240321
  Receipt Date: 20240403
  Transmission Date: 20240716
  Serious: Yes (Other)
  Sender: FDA-Public Use
  Company Number: CN-ROCHE-3528428

PATIENT
  Age: 43 Year
  Sex: Male

DRUGS (2)
  1. GAVRETO [Suspect]
     Active Substance: PRALSETINIB
     Indication: Non-small cell lung cancer
     Route: 048
     Dates: start: 20230209
  2. GAVRETO [Suspect]
     Active Substance: PRALSETINIB
     Route: 048

REACTIONS (5)
  - Metastases to lymph nodes [Unknown]
  - Pulmonary tuberculosis [Recovering/Resolving]
  - Fungal infection [Recovering/Resolving]
  - Bacterial infection [Recovering/Resolving]
  - Pyrexia [Recovered/Resolved]

NARRATIVE: CASE EVENT DATE: 20230801
